FAERS Safety Report 7822860 (Version 3)
Quarter: 2014Q2

REPORT INFORMATION
  Report Type: Spontaneous
  Country: CA (occurrence: CA)
  Receive Date: 20110223
  Receipt Date: 20140623
  Transmission Date: 20141212
  Serious: Yes (Hospitalization, Other)
  Sender: FDA-Public Use
  Company Number: CA-JNJFOC-20100707576

PATIENT
  Age: 26 Year
  Sex: Female
  Weight: 88 kg

DRUGS (9)
  1. REMICADE [Suspect]
     Indication: PSORIATIC ARTHROPATHY
     Route: 042
  2. REMICADE [Suspect]
     Indication: PSORIATIC ARTHROPATHY
     Dosage: 62 INFUSION
     Route: 042
     Dates: start: 20140616
  3. REMICADE [Suspect]
     Indication: PSORIATIC ARTHROPATHY
     Dosage: THIS WAS THE 36TH DOSE
     Route: 042
     Dates: start: 20110623
  4. REMICADE [Suspect]
     Indication: PSORIATIC ARTHROPATHY
     Dosage: THIS WAS THE 33RD DOSE
     Route: 042
     Dates: start: 20110214
  5. REMICADE [Suspect]
     Indication: PSORIATIC ARTHROPATHY
     Route: 042
     Dates: start: 20070122, end: 20100614
  6. METHOTREXATE [Concomitant]
  7. MULTIVITAMINS [Concomitant]
  8. FOLIC ACID [Concomitant]
  9. HERPES MEDICATON [Concomitant]

REACTIONS (5)
  - Exposure during pregnancy [Recovered/Resolved]
  - Hypertension [Not Recovered/Not Resolved]
  - Pruritus [Recovered/Resolved]
  - Erythema [Recovered/Resolved]
  - Infusion related reaction [Recovered/Resolved]
